FAERS Safety Report 25305519 (Version 1)
Quarter: 2025Q2

REPORT INFORMATION
  Report Type: Report from Study
  Country: GB (occurrence: GB)
  Receive Date: 20250513
  Receipt Date: 20250513
  Transmission Date: 20250717
  Serious: Yes (Other)
  Sender: SERVIER
  Company Number: GB-SERVIER-S25006463

PATIENT

DRUGS (1)
  1. VORASIDENIB [Suspect]
     Active Substance: VORASIDENIB
     Indication: Product used for unknown indication
     Route: 048
     Dates: end: 20250502

REACTIONS (1)
  - Toxicity to various agents [Unknown]
